FAERS Safety Report 22977336 (Version 2)
Quarter: 2023Q4

REPORT INFORMATION
  Report Type: Spontaneous
  Country: AT (occurrence: AT)
  Receive Date: 20230925
  Receipt Date: 20231009
  Transmission Date: 20240110
  Serious: Yes (Other)
  Sender: FDA-Public Use
  Company Number: AT-002147023-NVSC2023AT191626

PATIENT
  Sex: Female
  Weight: 157 kg

DRUGS (2)
  1. LETROZOLE [Suspect]
     Active Substance: LETROZOLE
     Indication: Breast cancer
     Dosage: 2.5 MILLIGRAM
     Route: 048
     Dates: start: 20220214, end: 202308
  2. PALBOCICLIB [Concomitant]
     Active Substance: PALBOCICLIB
     Indication: Product used for unknown indication
     Dosage: 125 MILLIGRAM
     Route: 048
     Dates: start: 20220214, end: 202308

REACTIONS (2)
  - Malignant neoplasm progression [Not Recovered/Not Resolved]
  - Breast cancer [Not Recovered/Not Resolved]

NARRATIVE: CASE EVENT DATE: 20230801
